FAERS Safety Report 18640508 (Version 1)
Quarter: 2020Q4

REPORT INFORMATION
  Report Type: Spontaneous
  Country: IT (occurrence: IT)
  Receive Date: 20201221
  Receipt Date: 20201221
  Transmission Date: 20210114
  Serious: Yes (Hospitalization)
  Sender: FDA-Public Use
  Company Number: IT-CELLTRION INC.-2020IT034082

PATIENT

DRUGS (4)
  1. DIBASE [Concomitant]
     Active Substance: CHOLECALCIFEROL
     Dosage: 100000 KIU
     Route: 048
  2. INFLECTRA [Suspect]
     Active Substance: INFLIXIMAB-DYYB
     Indication: CROHN^S DISEASE
     Dosage: 400 MG, CYCLIC
     Route: 041
     Dates: start: 20200303, end: 20200804
  3. NUVARING [Concomitant]
     Active Substance: ETHINYL ESTRADIOL\ETONOGESTREL
     Dosage: UNK
     Route: 067
  4. DOBETIN TOTALE [CYANOCOBALAMIN;PYRIDOXINE HYDROCHLORIDE;THIAMINE HYDRO [Concomitant]
     Dosage: 1000 KIU, CYCLIC
     Route: 030

REACTIONS (3)
  - Musculoskeletal pain [Recovered/Resolved]
  - Myasthenic syndrome [Recovered/Resolved]
  - Off label use [Unknown]

NARRATIVE: CASE EVENT DATE: 20200804
